FAERS Safety Report 20884477 (Version 1)
Quarter: 2022Q2

REPORT INFORMATION
  Report Type: Spontaneous
  Country: US (occurrence: None)
  Receive Date: 20220527
  Receipt Date: 20220527
  Transmission Date: 20220721
  Serious: Yes (Death, Hospitalization)
  Sender: FDA-Public Use
  Company Number: None

PATIENT
  Age: 66 Year
  Sex: Male
  Weight: 85.8 kg

DRUGS (1)
  1. RITUXIMAB [Suspect]
     Active Substance: RITUXIMAB
     Dates: end: 20211111

REACTIONS (18)
  - COVID-19 pneumonia [None]
  - Tachypnoea [None]
  - Hypoxia [None]
  - Blood glucose increased [None]
  - Blood potassium increased [None]
  - Blood urea increased [None]
  - Protein total decreased [None]
  - Blood bilirubin increased [None]
  - Blood albumin decreased [None]
  - Neutrophil count increased [None]
  - Lymphocyte count decreased [None]
  - Fibrin D dimer increased [None]
  - Pneumomediastinum [None]
  - Subcutaneous emphysema [None]
  - Cholelithiasis [None]
  - Electrocardiogram ST segment depression [None]
  - Pneumothorax [None]
  - Hypotension [None]

NARRATIVE: CASE EVENT DATE: 20220208
